FAERS Safety Report 25664660 (Version 1)
Quarter: 2025Q3

REPORT INFORMATION
  Report Type: Spontaneous
  Country: US (occurrence: None)
  Receive Date: 20250808
  Receipt Date: 20250808
  Transmission Date: 20251020
  Serious: Yes (Death)
  Sender: FDA-CTU
  Company Number: None

PATIENT
  Age: 79 Year
  Sex: Female

DRUGS (17)
  1. CAPECITABINE [Suspect]
     Active Substance: CAPECITABINE
     Indication: Breast cancer
     Dosage: 1000 MG TWICE A DAY ORAL
     Route: 048
     Dates: start: 20241212, end: 20250724
  2. AMLODIPINE BESYLATE [Concomitant]
     Active Substance: AMLODIPINE BESYLATE
     Dates: end: 20250730
  3. ASPIRIN [Concomitant]
     Active Substance: ASPIRIN
     Dates: end: 20250730
  4. CLARITIN [Concomitant]
     Active Substance: LORATADINE
     Dates: end: 20250730
  5. ELIQUIS [Concomitant]
     Active Substance: APIXABAN
     Dates: end: 20250730
  6. FLONASE [Concomitant]
     Active Substance: FLUTICASONE PROPIONATE
     Dates: end: 20250730
  7. INSULIN GLARGINE SOLOSTAR [Concomitant]
     Active Substance: INSULIN GLARGINE
     Dates: end: 20250730
  8. HYDROCHLOROTHIAZIDE\LISINOPRIL [Concomitant]
     Active Substance: HYDROCHLOROTHIAZIDE\LISINOPRIL
     Dates: end: 20250730
  9. METOPROLOL TARTRATE [Concomitant]
     Active Substance: METOPROLOL TARTRATE
     Dates: end: 20250730
  10. NOVOLOG [Concomitant]
     Active Substance: INSULIN ASPART
     Dates: end: 20250730
  11. ONDANSETRON 4MG ODT [Concomitant]
     Dates: end: 20250730
  12. OTEZLA [Concomitant]
     Active Substance: APREMILAST
     Dates: end: 20250730
  13. PRAVASTATIN [Concomitant]
     Active Substance: PRAVASTATIN
     Dates: end: 20250730
  14. PROZAC [Concomitant]
     Active Substance: FLUOXETINE HYDROCHLORIDE
     Dates: end: 20250730
  15. TRELEGY ELLIPTA 200-62.5MG [Concomitant]
     Dates: end: 20250730
  16. VOLTAREN [Concomitant]
     Active Substance: DICLOFENAC SODIUM
     Dates: end: 20250730
  17. ZOLPIDEM [Concomitant]
     Active Substance: ZOLPIDEM TARTRATE
     Dates: end: 20250730

REACTIONS (1)
  - Death [None]

NARRATIVE: CASE EVENT DATE: 20250730
